FAERS Safety Report 23625818 (Version 1)
Quarter: 2024Q1

REPORT INFORMATION
  Report Type: Spontaneous
  Country: US (occurrence: US)
  Receive Date: 20240313
  Receipt Date: 20240313
  Transmission Date: 20240409
  Serious: Yes (Disabling)
  Sender: FDA-Public Use
  Company Number: US-SA-SAC20240308000332

PATIENT
  Sex: Female

DRUGS (10)
  1. AUBAGIO [Suspect]
     Active Substance: TERIFLUNOMIDE
     Indication: Multiple sclerosis
     Route: 065
  2. REBIF [Concomitant]
     Active Substance: INTERFERON BETA-1A
  3. METHYLPHENIDATE HYDROCHLORIDE [Concomitant]
     Active Substance: METHYLPHENIDATE HYDROCHLORIDE
  4. BACLOFEN [Concomitant]
     Active Substance: BACLOFEN
  5. CITALOPRAM HYDROBROMIDE [Concomitant]
     Active Substance: CITALOPRAM HYDROBROMIDE
  6. MINOCYCLINE HYDROCHLORIDE [Concomitant]
     Active Substance: MINOCYCLINE HYDROCHLORIDE
  7. CLINDAMYCIN HYDROCHLORIDE [Concomitant]
     Active Substance: CLINDAMYCIN HYDROCHLORIDE
  8. FUROSEMIDE [Concomitant]
     Active Substance: FUROSEMIDE
  9. ACETAMINOPHEN\HYDROCODONE [Concomitant]
     Active Substance: ACETAMINOPHEN\HYDROCODONE
  10. VANCOMYCIN HYDROCHLORIDE [Concomitant]
     Active Substance: VANCOMYCIN HYDROCHLORIDE

REACTIONS (13)
  - Walking aid user [Unknown]
  - Loss of personal independence in daily activities [Unknown]
  - Tremor [Unknown]
  - Dysarthria [Unknown]
  - Urinary incontinence [Unknown]
  - Anal incontinence [Unknown]
  - Memory impairment [Unknown]
  - Disturbance in attention [Unknown]
  - Gait disturbance [Unknown]
  - Balance disorder [Unknown]
  - Pain in extremity [Unknown]
  - Paraesthesia [Unknown]
  - Hypoaesthesia [Unknown]
